FAERS Safety Report 6080743-7 (Version None)
Quarter: 2009Q1

REPORT INFORMATION
  Report Type: 
  Country: None (occurrence: None)
  Receive Date: 20090217
  Receipt Date: 20090205
  Transmission Date: 20090719
  Serious: Yes (Other)
  Sender: FDA-Public Use
  Company Number: DE-TEVA-185533ISR

PATIENT
  Age: 20 Year
  Sex: Female

DRUGS (1)
  1. BUDESONIDE [Suspect]
     Route: 055

REACTIONS (2)
  - PALPITATIONS [None]
  - PRODUCT QUALITY ISSUE [None]
